FAERS Safety Report 4343168-8 (Version None)
Quarter: 2004Q1

REPORT INFORMATION
  Report Type: 
  Country: None (occurrence: None)
  Receive Date: 20040325
  Receipt Date: 20031218
  Transmission Date: 20041129
  Serious: No
  Sender: FDA-Public Use
  Company Number: USA031255086

PATIENT
  Age: 63 Year
  Sex: Female

DRUGS (1)
  1. FORTEO [Suspect]
     Dosage: UNK
     Route: 065
     Dates: start: 20031101, end: 20031216

REACTIONS (5)
  - DYSPEPSIA [None]
  - NAUSEA [None]
  - PRURITUS [None]
  - RASH [None]
  - SKIN LESION [None]
